FAERS Safety Report 10006319 (Version 1)
Quarter: 2014Q1

REPORT INFORMATION
  Report Type: Report from Study
  Country: US (occurrence: US)
  Receive Date: 20140313
  Receipt Date: 20140313
  Transmission Date: 20141002
  Serious: Yes (Hospitalization, Other)
  Sender: FDA-Public Use
  Company Number: US-BAYER-2014-035117

PATIENT
  Age: 59 Year
  Sex: Female
  Weight: 78.46 kg

DRUGS (12)
  1. SORAFENIB (RAF KINASE INHIBITOR) [Suspect]
     Indication: THYROID CANCER
     Dosage: 400 MG, QD
     Route: 048
     Dates: start: 20131003, end: 20140120
  2. EVEROLIMUS [Suspect]
     Indication: THYROID CANCER
     Dosage: 5 MG, QD
     Route: 048
     Dates: start: 20131003, end: 20140120
  3. BETAMETHASONE [Concomitant]
  4. CEPHALEXIN [Concomitant]
  5. FAMOTIDINE [Concomitant]
  6. LOPERAMIDE [Concomitant]
  7. IBUPROFEN [Concomitant]
  8. MIRTAZAPINE [Concomitant]
  9. ONDANSETRON [Concomitant]
  10. PERCOCET [Concomitant]
  11. SIMETHICONE [Concomitant]
  12. SYNTHROID [Concomitant]

REACTIONS (4)
  - Eating disorder [None]
  - Dysgeusia [None]
  - Weight decreased [None]
  - Parenteral nutrition [None]
